FAERS Safety Report 6654153-5 (Version None)
Quarter: 2010Q1

REPORT INFORMATION
  Report Type: 
  Country: None (occurrence: None)
  Receive Date: 20100326
  Receipt Date: 20100318
  Transmission Date: 20100710
  Serious: Yes (Hospitalization)
  Sender: FDA-Public Use
  Company Number: FR-PFIZER INC-2010034681

PATIENT
  Age: 64 Year
  Sex: Male

DRUGS (10)
  1. TAHOR [Suspect]
     Dosage: 1 DF, 1X/DAY
     Route: 048
     Dates: start: 20100226, end: 20100301
  2. AGRASTAT [Suspect]
     Dosage: 2 POUCHES
     Route: 042
     Dates: start: 20100226, end: 20100226
  3. AGRASTAT [Suspect]
     Dosage: 1 POUCH
     Route: 042
     Dates: start: 20100228, end: 20100228
  4. AGRASTAT [Suspect]
     Dosage: 1 POUCH
     Route: 042
     Dates: start: 20100301, end: 20100301
  5. LOVENOX [Suspect]
     Dosage: 0.7 ML, 2X/DAY
     Route: 058
     Dates: start: 20100226, end: 20100301
  6. SECTRAL [Suspect]
     Dosage: 200 MG, 1X/DAY
     Route: 048
     Dates: start: 20100226, end: 20100301
  7. PLAVIX [Concomitant]
     Dosage: 75 MG, 1X/DAY
     Route: 048
     Dates: start: 20100226
  8. KARDEGIC [Concomitant]
     Dosage: 75 MG, 1X/DAY
     Route: 048
     Dates: start: 20100226
  9. LASIX [Concomitant]
     Dosage: 40 MG, 1X/DAY
     Route: 048
     Dates: start: 20100226
  10. COVERSYL [Concomitant]
     Dosage: 4 MG, 2X/DAY
     Route: 048
     Dates: start: 20100226

REACTIONS (1)
  - THROMBOCYTOPENIA [None]
